FAERS Safety Report 4939765-9 (Version None)
Quarter: 2006Q1

REPORT INFORMATION
  Report Type: 
  Country: None (occurrence: None)
  Receive Date: 20060307
  Receipt Date: 20060223
  Transmission Date: 20060701
  Serious: Yes (Other)
  Sender: FDA-Public Use
  Company Number: 2006028602

PATIENT
  Age: 44 Year
  Sex: Male
  Weight: 102 kg

DRUGS (4)
  1. VIAGRA [Suspect]
     Indication: ERECTILE DYSFUNCTION
     Dosage: 100 MG, ORAL
     Route: 048
     Dates: start: 20040101, end: 20050101
  2. LISINOPRIL [Concomitant]
  3. INSULIN (INSULIN) [Concomitant]
  4. SIMVASTATIN [Concomitant]

REACTIONS (3)
  - EYE DISORDER [None]
  - VISUAL ACUITY REDUCED [None]
  - VISUAL DISTURBANCE [None]
